FAERS Safety Report 12169741 (Version 1)
Quarter: 2016Q1

REPORT INFORMATION
  Report Type: Spontaneous
  Country: GB (occurrence: GB)
  Receive Date: 20160310
  Receipt Date: 20160310
  Transmission Date: 20160526
  Serious: Yes (Other)
  Sender: FDA-Public Use
  Company Number: PHHY2016GB029473

PATIENT
  Age: 68 Year
  Sex: Female

DRUGS (1)
  1. ALENDRONIC ACID [Suspect]
     Active Substance: ALENDRONIC ACID
     Indication: PRODUCT USED FOR UNKNOWN INDICATION
     Route: 065
     Dates: start: 2015, end: 201511

REACTIONS (8)
  - Mouth ulceration [Not Recovered/Not Resolved]
  - Tongue eruption [Not Recovered/Not Resolved]
  - Alopecia [Not Recovered/Not Resolved]
  - Burn oral cavity [Not Recovered/Not Resolved]
  - Arthralgia [Not Recovered/Not Resolved]
  - Loose tooth [Not Recovered/Not Resolved]
  - Ageusia [Not Recovered/Not Resolved]
  - Muscular weakness [Recovered/Resolved]
